FAERS Safety Report 6699015-2 (Version None)
Quarter: 2010Q2

REPORT INFORMATION
  Report Type: 
  Country: None (occurrence: None)
  Receive Date: 20100426
  Receipt Date: 20100426
  Transmission Date: 20101027
  Serious: Yes (Hospitalization)
  Sender: FDA-Public Use
  Company Number: None

PATIENT
  Age: 67 Year
  Sex: Male

DRUGS (1)
  1. LISINOPRIL AND HYDROCHLOROTHIAZIDE [Suspect]
     Indication: HYPERTENSION
     Dosage: 25/20 EVERY DAY PO
     Route: 048
     Dates: start: 20100303, end: 20100306

REACTIONS (4)
  - CONVULSION [None]
  - DRUG ABUSE [None]
  - ELECTROCARDIOGRAM ST SEGMENT ELEVATION [None]
  - SYNCOPE [None]
